FAERS Safety Report 10617031 (Version 1)
Quarter: 2014Q4

REPORT INFORMATION
  Report Type: Spontaneous
  Country: ES (occurrence: ES)
  Receive Date: 20141201
  Receipt Date: 20141201
  Transmission Date: 20150529
  Serious: Yes (Death)
  Sender: FDA-Public Use
  Company Number: ES-CUBIST PHARMACEUTICALS, INC.-2014CBST001586

PATIENT

DRUGS (10)
  1. LEVOFLOXACIN. [Concomitant]
     Active Substance: LEVOFLOXACIN
     Indication: ENDOCARDITIS
     Dosage: 500 MG, Q24H
     Route: 042
     Dates: start: 20091223, end: 20091229
  2. CUBICIN [Suspect]
     Active Substance: DAPTOMYCIN
     Dosage: 8.33 MG/KG, Q24H
     Route: 042
     Dates: start: 20091211, end: 20100102
  3. LINEZOLID. [Concomitant]
     Active Substance: LINEZOLID
     Indication: MEDIASTINITIS
     Dosage: 600 MG, Q12H
     Route: 042
     Dates: start: 20090830, end: 20090914
  4. CUBICIN [Suspect]
     Active Substance: DAPTOMYCIN
     Indication: MEDIASTINITIS
     Dosage: 350 MG, Q24H
     Route: 042
     Dates: start: 20090103, end: 20090119
  5. CUBICIN [Suspect]
     Active Substance: DAPTOMYCIN
     Indication: ENDOCARDITIS
     Dosage: 600 MG, Q24H
     Route: 042
     Dates: start: 20091211, end: 20100102
  6. MEROPENEM. [Concomitant]
     Active Substance: MEROPENEM
     Indication: MEDIASTINITIS
     Dosage: 1000 MG, Q8H
     Route: 042
     Dates: start: 20081229, end: 20090113
  7. CEFEPIME [Concomitant]
     Active Substance: CEFEPIME\CEFEPIME HYDROCHLORIDE
     Indication: ENDOCARDITIS
     Dosage: 2000 MG, Q12H
     Route: 042
     Dates: start: 20091223, end: 20101229
  8. CUBICIN [Suspect]
     Active Substance: DAPTOMYCIN
     Indication: OFF LABEL USE
     Dosage: 4.86 MG/KG, Q24H
     Route: 042
     Dates: start: 20090103, end: 20090119
  9. MEROPENEM. [Concomitant]
     Active Substance: MEROPENEM
     Indication: ENDOCARDITIS
     Dosage: 1000 MG, Q8H
     Route: 042
     Dates: start: 20091229, end: 20100102
  10. CEFEPIME [Concomitant]
     Active Substance: CEFEPIME\CEFEPIME HYDROCHLORIDE
     Indication: MEDIASTINITIS
     Dosage: 2000 MG, Q8H
     Route: 042
     Dates: start: 20090830, end: 20090914

REACTIONS (4)
  - Endocarditis [Fatal]
  - Bacterial infection [Fatal]
  - Multi-organ failure [Fatal]
  - Off label use [Unknown]
